FAERS Safety Report 20851823 (Version 1)
Quarter: 2022Q2

REPORT INFORMATION
  Report Type: Spontaneous
  Country: FR (occurrence: FR)
  Receive Date: 20220520
  Receipt Date: 20220520
  Transmission Date: 20220720
  Serious: Yes (Congenital Anomaly, Other)
  Sender: FDA-Public Use
  Company Number: FR-AFSSAPS-LL20221656

PATIENT
  Age: 22 Year
  Sex: Female

DRUGS (1)
  1. NEBIVOLOL [Suspect]
     Active Substance: NEBIVOLOL
     Indication: Tachycardia
     Dosage: 5 MILLIGRAM
     Route: 065

REACTIONS (1)
  - Brain malformation [Not Recovered/Not Resolved]

NARRATIVE: CASE EVENT DATE: 20220401
